FAERS Safety Report 16382652 (Version 1)
Quarter: 2019Q2

REPORT INFORMATION
  Report Type: Spontaneous
  Country: US (occurrence: US)
  Receive Date: 20190501
  Receipt Date: 20190501
  Transmission Date: 20190711
  Serious: Yes (Other)
  Sender: FDA-Public Use
  Company Number: None

PATIENT
  Age: 82 Year
  Sex: Female

DRUGS (9)
  1. SERTRALINE [Concomitant]
     Active Substance: SERTRALINE HYDROCHLORIDE
     Dates: start: 20190301
  2. CEPHALEXIN CAPSULE 500MG [Concomitant]
     Dates: start: 20190419, end: 20190426
  3. LOPERAMIDE CAPSULE 2MG [Concomitant]
     Dates: start: 20190207, end: 20190209
  4. OXYCODONE TABLET 5MG [Concomitant]
     Dates: start: 20190207
  5. PROCHLORPERAZINE TABLET 10MG [Concomitant]
     Dates: start: 20190204, end: 20190211
  6. CAPECITABINE. [Suspect]
     Active Substance: CAPECITABINE
     Indication: BREAST CANCER FEMALE
     Dosage: ?          OTHER FREQUENCY:DAYS1-7,15-21 Q28D;?
     Route: 048
     Dates: start: 20190209
  7. TRIAMTERINE/HCTZ TABLET 37.5-25MG [Concomitant]
     Dates: start: 20190211
  8. DULOXETINE CAPSULE 30MG [Concomitant]
     Dates: start: 20190314
  9. LORAZEPAM TABLET 1MG [Concomitant]
     Active Substance: LORAZEPAM
     Dates: start: 20190207, end: 20190211

REACTIONS (2)
  - Anxiety [None]
  - Metastases to bone [None]

NARRATIVE: CASE EVENT DATE: 20190430
